FAERS Safety Report 9845887 (Version 5)
Quarter: 2014Q2

REPORT INFORMATION
  Report Type: Spontaneous
  Country: US (occurrence: US)
  Receive Date: 20140127
  Receipt Date: 20140417
  Transmission Date: 20141212
  Serious: Yes (Death)
  Sender: FDA-Public Use
  Company Number: US-PFIZER INC-2013368735

PATIENT
  Age: 68 Year
  Sex: Male

DRUGS (1)
  1. SUTENT [Suspect]
     Indication: HEAD AND NECK CANCER
     Dosage: 50 MG, DAILY X 28 DAYS
     Route: 048
     Dates: start: 20131106, end: 20131106

REACTIONS (7)
  - Disease progression [Fatal]
  - Head and neck cancer [Fatal]
  - Off label use [Unknown]
  - Fatigue [Recovering/Resolving]
  - Asthenia [Recovering/Resolving]
  - Nausea [Recovering/Resolving]
  - Vomiting [Recovering/Resolving]
